FAERS Safety Report 21905419 (Version 2)
Quarter: 2023Q1

REPORT INFORMATION
  Report Type: Report from Study
  Country: US (occurrence: US)
  Receive Date: 20230124
  Receipt Date: 20230124
  Transmission Date: 20230417
  Serious: Yes (Other)
  Sender: FDA-Public Use
  Company Number: US-VER-202300013

PATIENT
  Age: 60 Year
  Sex: Male

DRUGS (15)
  1. TRELSTAR [Suspect]
     Active Substance: TRIPTORELIN PAMOATE
     Indication: Hormone therapy
     Route: 058
     Dates: start: 2022, end: 2022
  2. RYBELSUS [Suspect]
     Active Substance: SEMAGLUTIDE
     Indication: Weight decreased
     Route: 048
     Dates: start: 2022, end: 20221202
  3. RYBELSUS [Suspect]
     Active Substance: SEMAGLUTIDE
     Indication: Glucose tolerance impaired
     Route: 048
     Dates: start: 2022, end: 20221202
  4. RYBELSUS [Suspect]
     Active Substance: SEMAGLUTIDE
     Indication: Hormone therapy
     Route: 048
     Dates: start: 2022, end: 20221202
  5. VITAMIN D3 [Concomitant]
     Active Substance: CHOLECALCIFEROL
     Indication: Product used for unknown indication
     Route: 065
  6. MAGNESIUM [Concomitant]
     Active Substance: MAGNESIUM
     Indication: Product used for unknown indication
     Route: 065
  7. FIRMAGON [Suspect]
     Active Substance: DEGARELIX ACETATE
     Indication: Hormone therapy
     Route: 058
     Dates: start: 2022
  8. XTANDI [Suspect]
     Active Substance: ENZALUTAMIDE
     Indication: Hormone therapy
     Route: 048
     Dates: start: 2022
  9. CORTISONE [Suspect]
     Active Substance: CORTISONE
     Indication: Steroid therapy
     Route: 065
     Dates: start: 2022
  10. LUPRON [Suspect]
     Active Substance: LEUPROLIDE ACETATE
     Indication: Hormone therapy
     Route: 058
     Dates: start: 2022
  11. IODINE [Concomitant]
     Active Substance: IODINE
     Indication: Product used for unknown indication
     Route: 065
  12. BORORN [Concomitant]
     Indication: Product used for unknown indication
     Route: 065
  13. FISH OIL [Concomitant]
     Active Substance: FISH OIL
     Indication: Product used for unknown indication
     Route: 065
  14. FLAXSEED [Concomitant]
     Active Substance: FLAX SEED
     Indication: Product used for unknown indication
     Route: 065
  15. ZINC [Concomitant]
     Active Substance: ZINC
     Indication: Product used for unknown indication
     Route: 065

REACTIONS (19)
  - Abdominal distension [Not Recovered/Not Resolved]
  - Feeling abnormal [Not Recovered/Not Resolved]
  - Catatonia [Not Recovered/Not Resolved]
  - Depression [Not Recovered/Not Resolved]
  - Diarrhoea [Not Recovered/Not Resolved]
  - Dissociation [Not Recovered/Not Resolved]
  - Dysuria [Not Recovered/Not Resolved]
  - Homosexuality [Recovered/Resolved]
  - Increased appetite [Not Recovered/Not Resolved]
  - Inflammation [Not Recovered/Not Resolved]
  - Peripheral swelling [Not Recovered/Not Resolved]
  - Nausea [Not Recovered/Not Resolved]
  - Penile size reduced [Not Recovered/Not Resolved]
  - Personality change [Not Recovered/Not Resolved]
  - Abdominal pain upper [Not Recovered/Not Resolved]
  - Product use in unapproved indication [Unknown]
  - Testicular swelling [Not Recovered/Not Resolved]
  - Blood testosterone abnormal [Not Recovered/Not Resolved]
  - Weight increased [Not Recovered/Not Resolved]

NARRATIVE: CASE EVENT DATE: 20220101
